FAERS Safety Report 5124213-9 (Version None)
Quarter: 2006Q4

REPORT INFORMATION
  Report Type: 
  Country: None (occurrence: None)
  Receive Date: 20061010
  Receipt Date: 20061006
  Transmission Date: 20070319
  Serious: Yes (Death)
  Sender: FDA-Public Use
  Company Number: US-JNJFOC-20061001646

PATIENT
  Sex: Male

DRUGS (4)
  1. ULTRACET [Suspect]
     Indication: BACK PAIN
  2. LORTAB [Suspect]
     Indication: DRUG USE FOR UNKNOWN INDICATION
  3. XANAX [Suspect]
     Indication: DRUG USE FOR UNKNOWN INDICATION
  4. SEIZURE MEDICATION (NOS) [Suspect]
     Indication: CONVULSION

REACTIONS (2)
  - DEPRESSION [None]
  - MULTIPLE DRUG OVERDOSE ACCIDENTAL [None]
